FAERS Safety Report 25892512 (Version 1)
Quarter: 2025Q4

REPORT INFORMATION
  Report Type: Report from Study
  Country: CN (occurrence: CN)
  Receive Date: 20251007
  Receipt Date: 20251007
  Transmission Date: 20260118
  Serious: Yes (Other)
  Sender: ELI LILLY AND COMPANY
  Company Number: CN-ELI_LILLY_AND_COMPANY-CN202510002358

PATIENT
  Age: 62 Year
  Sex: Male
  Weight: 92 kg

DRUGS (3)
  1. TALTZ [Suspect]
     Active Substance: IXEKIZUMAB
     Indication: Psoriasis
     Dosage: 160 MG, SINGLE
     Route: 058
     Dates: start: 20241012
  2. TALTZ [Suspect]
     Active Substance: IXEKIZUMAB
     Dosage: 80 MG, OTHER (ONCE EVERY TWO WEEKS)
     Route: 058
     Dates: start: 20241026, end: 20250104
  3. TALTZ [Suspect]
     Active Substance: IXEKIZUMAB
     Dosage: 80 MG, OTHER (ONCE EVERY FOUR WEEKS)
     Route: 058
     Dates: start: 20250204, end: 20250825

REACTIONS (1)
  - Hepatic neoplasm [Not Recovered/Not Resolved]
